FAERS Safety Report 9776210 (Version 1)
Quarter: 2013Q4

REPORT INFORMATION
  Report Type: Spontaneous
  Country: JP (occurrence: JP)
  Receive Date: 20131220
  Receipt Date: 20131220
  Transmission Date: 20140711
  Serious: Yes (Hospitalization)
  Sender: FDA-Public Use
  Company Number: JP-TAKEDA-2013TJP003960

PATIENT
  Age: 20 Year
  Sex: Female

DRUGS (7)
  1. ROZEREM TABLETS 8MG. [Suspect]
     Dosage: UNK
     Route: 048
  2. LAMICTAL [Suspect]
     Dosage: UNK
     Route: 048
  3. DEPAKENE-R [Suspect]
     Dosage: UNK
     Route: 048
  4. MUCOSTA [Suspect]
     Dosage: UNK
     Route: 048
  5. JZOLOFT [Suspect]
     Dosage: UNK
     Route: 048
  6. MYSLEE [Suspect]
     Dosage: UNK
     Route: 048
  7. U PAN [Suspect]
     Dosage: UNK
     Route: 048

REACTIONS (1)
  - Drug reaction with eosinophilia and systemic symptoms [Recovering/Resolving]
